FAERS Safety Report 8862551 (Version 2)
Quarter: 2013Q2

REPORT INFORMATION
  Report Type: Spontaneous
  Country: US (occurrence: US)
  Receive Date: 20121026
  Receipt Date: 20130606
  Transmission Date: 20140414
  Serious: Yes (Other)
  Sender: FDA-Public Use
  Company Number: US-FRI-1000039737

PATIENT
  Age: 45 Year
  Sex: Female
  Weight: 172.72 kg

DRUGS (6)
  1. VIIBRYD [Suspect]
     Indication: MAJOR DEPRESSION
     Dosage: 10 MG
     Route: 048
     Dates: start: 20120816, end: 20120817
  2. SERTRALINE [Concomitant]
     Indication: DEPRESSION
     Dosage: 200 MG
  3. PROVIGIL [Concomitant]
     Indication: SLEEP APNOEA SYNDROME
     Dosage: 200 MG
  4. ALPRAZOLAM [Concomitant]
     Dosage: 0.5 MG
  5. OMEPRAZOLE [Concomitant]
     Indication: GASTROOESOPHAGEAL REFLUX DISEASE
  6. CLARITIN [Concomitant]

REACTIONS (4)
  - Suicidal ideation [Recovered/Resolved]
  - Violence-related symptom [Recovered/Resolved]
  - Emotional disorder [Recovered/Resolved]
  - Impulsive behaviour [Recovered/Resolved]
